FAERS Safety Report 7690609-4 (Version None)
Quarter: 2011Q3

REPORT INFORMATION
  Report Type: 
  Country: None (occurrence: None)
  Receive Date: 20110812
  Receipt Date: 20110805
  Transmission Date: 20111222
  Serious: Yes (Other)
  Sender: FDA-Public Use
  Company Number: 2011SP037084

PATIENT
  Age: 52 Year
  Sex: Female

DRUGS (5)
  1. WELLBUTRIN [Concomitant]
  2. KLONOPIN [Concomitant]
  3. SAPHRIS [Suspect]
     Indication: BIPOLAR DISORDER
     Dosage: 5 MG; BID;
     Dates: start: 20101201, end: 20110101
  4. CELEXA [Concomitant]
  5. LAMICTAL [Concomitant]

REACTIONS (3)
  - ARTHRITIS [None]
  - WEIGHT INCREASED [None]
  - CONDITION AGGRAVATED [None]
